FAERS Safety Report 9435282 (Version 2)
Quarter: 2013Q3

REPORT INFORMATION
  Report Type: Spontaneous
  Country: US (occurrence: US)
  Receive Date: 20130801
  Receipt Date: 20130821
  Transmission Date: 20140515
  Serious: No
  Sender: FDA-Public Use
  Company Number: US-009507513-1307USA016982

PATIENT
  Sex: Male
  Weight: 129.25 kg

DRUGS (3)
  1. AFRIN [Suspect]
     Indication: DYSPNOEA
     Dosage: UNK, TID
     Route: 048
     Dates: start: 2012
  2. DIOVAN [Concomitant]
     Indication: HYPERTENSION
     Dosage: UNK, UNKNOWN
  3. LESCOL [Concomitant]
     Indication: BLOOD CHOLESTEROL INCREASED
     Dosage: UNK, UNKNOWN

REACTIONS (4)
  - Dependence [Unknown]
  - Overdose [Unknown]
  - Incorrect drug administration duration [Unknown]
  - Product odour abnormal [Unknown]
